FAERS Safety Report 18724131 (Version 2)
Quarter: 2021Q1

REPORT INFORMATION
  Report Type: Report from Study
  Country: None (occurrence: US)
  Receive Date: 20210111
  Receipt Date: 20210127
  Transmission Date: 20210419
  Serious: No
  Sender: FDA-Public Use
  Company Number: US-ABBVIE-21K-163-3723226-00

PATIENT
  Sex: Female
  Weight: 86.26 kg

DRUGS (2)
  1. DUOPA [Suspect]
     Active Substance: CARBIDOPA\LEVODOPA
  2. DUOPA [Suspect]
     Active Substance: CARBIDOPA\LEVODOPA
     Indication: PARKINSON^S DISEASE
     Route: 050
     Dates: start: 202009

REACTIONS (12)
  - Gallbladder disorder [Unknown]
  - Blood pressure increased [Recovered/Resolved]
  - Muscle rigidity [Not Recovered/Not Resolved]
  - Dyspnoea [Recovered/Resolved]
  - Stoma site haemorrhage [Unknown]
  - Poor quality sleep [Not Recovered/Not Resolved]
  - Breast pain [Recovered/Resolved]
  - Musculoskeletal stiffness [Not Recovered/Not Resolved]
  - Abdominal pain lower [Recovered/Resolved]
  - Blood pressure increased [Recovered/Resolved]
  - Abdominal pain [Unknown]
  - Anxiety [Recovered/Resolved]

NARRATIVE: CASE EVENT DATE: 2020
